FAERS Safety Report 8374760-1 (Version None)
Quarter: 2012Q2

REPORT INFORMATION
  Report Type: 
  Country: None (occurrence: None)
  Receive Date: 20120521
  Receipt Date: 20120508
  Transmission Date: 20120825
  Serious: Yes (Hospitalization, Other)
  Sender: FDA-Public Use
  Company Number: US-JNJFOC-20120300517

PATIENT
  Sex: Female
  Weight: 93.44 kg

DRUGS (4)
  1. REMICADE [Suspect]
     Route: 042
     Dates: start: 20111001
  2. MACROBID [Suspect]
     Indication: URINARY TRACT INFECTION
     Route: 065
     Dates: start: 20111229
  3. CIPROFLOXACIN HCL [Suspect]
     Indication: URINARY TRACT INFECTION
     Route: 065
  4. REMICADE [Suspect]
     Indication: PSORIATIC ARTHROPATHY
     Route: 042
     Dates: start: 20120424, end: 20120424

REACTIONS (7)
  - URINARY TRACT INFECTION [None]
  - UMBILICAL HERNIA [None]
  - CHOLELITHIASIS [None]
  - BACK PAIN [None]
  - FEELING HOT [None]
  - FLUSHING [None]
  - INFUSION RELATED REACTION [None]
